FAERS Safety Report 20850573 (Version 1)
Quarter: 2022Q2

REPORT INFORMATION
  Report Type: Spontaneous
  Country: US (occurrence: None)
  Receive Date: 20220518
  Receipt Date: 20220518
  Transmission Date: 20220721
  Serious: Yes (Other)
  Sender: FDA-Public Use
  Company Number: None

PATIENT
  Age: 17 Year
  Sex: Male
  Weight: 96.75 kg

DRUGS (1)
  1. RYLAZE [Suspect]
     Active Substance: ASPARAGINASE ERWINIA CHRYSANTHEMI (RECOMBINANT)-RYWN
     Indication: Neoplasm malignant

REACTIONS (3)
  - Inappropriate schedule of product administration [None]
  - Product use in unapproved therapeutic environment [None]
  - Product communication issue [None]

NARRATIVE: CASE EVENT DATE: 20220518
